FAERS Safety Report 8160551-3 (Version None)
Quarter: 2012Q1

REPORT INFORMATION
  Report Type: 
  Country: None (occurrence: None)
  Receive Date: 20120223
  Receipt Date: 20120207
  Transmission Date: 20120608
  Serious: Yes (Other)
  Sender: FDA-Public Use
  Company Number: CHPA2012US002781

PATIENT
  Age: 35 Year
  Sex: Female

DRUGS (2)
  1. EXCEDRIN EXTRA STRENGTH TABLETS [Suspect]
     Dosage: 3-4 DF, QD
     Route: 048
     Dates: start: 20070101, end: 20111201
  2. EXCEDRIN EXTRA STRENGTH TABLETS [Suspect]
     Indication: HEADACHE
     Dosage: UNK, PRN
     Route: 048
     Dates: start: 20050101, end: 20070101

REACTIONS (9)
  - ROAD TRAFFIC ACCIDENT [None]
  - DIZZINESS [None]
  - DRUG WITHDRAWAL HEADACHE [None]
  - INCORRECT DRUG ADMINISTRATION DURATION [None]
  - DIPLOPIA [None]
  - HEADACHE [None]
  - NAUSEA [None]
  - CONFUSIONAL STATE [None]
  - AMNESIA [None]
